FAERS Safety Report 8514213-0 (Version None)
Quarter: 2012Q3

REPORT INFORMATION
  Report Type: 
  Country: None (occurrence: None)
  Receive Date: 20120717
  Receipt Date: 20120709
  Transmission Date: 20120928
  Serious: Yes (Disabling, Other)
  Sender: FDA-Public Use
  Company Number: GB-B.I. PHARMACEUTICALS,INC./RIDGEFIELD-2012-UK-00901UK

PATIENT
  Age: 71 Year
  Sex: Male
  Weight: 88.905 kg

DRUGS (6)
  1. ATENOLOL [Concomitant]
     Dates: start: 20120306
  2. DABIGATRAN ETEXILATE [Concomitant]
     Dates: start: 20120516
  3. ASPIRIN [Concomitant]
     Dates: start: 20120306
  4. LOSARTAN POTASSIUM [Concomitant]
     Dates: start: 20120306
  5. SIMVASTATIN [Concomitant]
     Dates: start: 20120306
  6. PRADAXA [Suspect]

REACTIONS (2)
  - ARTHRALGIA [None]
  - ARTHRITIS [None]
